FAERS Safety Report 7550867-3 (Version None)
Quarter: 2011Q2

REPORT INFORMATION
  Report Type: 
  Country: None (occurrence: None)
  Receive Date: 20110616
  Receipt Date: 20110613
  Transmission Date: 20111010
  Serious: No
  Sender: FDA-Public Use
  Company Number: US-PFIZER INC-2011066981

PATIENT
  Age: 5 Year
  Sex: Male

DRUGS (1)
  1. CHILDREN'S ADVIL [Suspect]
     Indication: PYREXIA
     Dosage: UNK

REACTIONS (4)
  - DRUG INEFFECTIVE [None]
  - PRURITUS GENERALISED [None]
  - RASH MACULAR [None]
  - URTICARIA [None]
